FAERS Safety Report 6915513-8 (Version None)
Quarter: 2010Q3

REPORT INFORMATION
  Report Type: 
  Country: None (occurrence: None)
  Receive Date: 20100804
  Receipt Date: 20100727
  Transmission Date: 20110219
  Serious: Yes (Other)
  Sender: FDA-Public Use
  Company Number: DSA_43591_2010

PATIENT
  Sex: Female

DRUGS (16)
  1. XENAZINE [Suspect]
     Indication: HUNTINGTON'S DISEASE
     Dosage: 12.5 MG BID ORAL, 12.5 MG TID ORAL
     Route: 048
     Dates: start: 20100128, end: 20100512
  2. XENAZINE [Suspect]
     Indication: HUNTINGTON'S DISEASE
     Dosage: 12.5 MG BID ORAL, 12.5 MG TID ORAL
     Route: 048
     Dates: start: 20100513
  3. REMERON [Concomitant]
  4. KLONOPIN [Concomitant]
  5. ASPIRIN [Concomitant]
  6. OXYBUTYNIN [Concomitant]
  7. CYMBALTA [Concomitant]
  8. COLACE [Concomitant]
  9. ZOCOR [Concomitant]
  10. FIBERCON [Concomitant]
  11. ATENOLOL [Concomitant]
  12. DEPAKOTE [Concomitant]
  13. MIRALAX [Concomitant]
  14. ZANTAC [Concomitant]
  15. ULTRAM [Concomitant]
  16. MECLIZINE [Concomitant]

REACTIONS (2)
  - MOVEMENT DISORDER [None]
  - TREMOR [None]
